FAERS Safety Report 11450279 (Version 1)
Quarter: 2015Q3

REPORT INFORMATION
  Report Type: Spontaneous
  Country: US (occurrence: US)
  Receive Date: 20150903
  Receipt Date: 20150903
  Transmission Date: 20151125
  Serious: No
  Sender: FDA-Public Use
  Company Number: US-ROCHE-1062224

PATIENT
  Sex: Male
  Weight: 85.35 kg

DRUGS (6)
  1. PEGASYS [Suspect]
     Active Substance: PEGINTERFERON ALFA-2A
     Indication: HEPATITIS C
     Dosage: SECOND TREATMENT
     Route: 058
     Dates: start: 20120326
  2. INCIVEK [Suspect]
     Active Substance: TELAPREVIR
     Indication: HEPATITIS C
     Dosage: SECOND TREATMENT
     Route: 065
     Dates: start: 20120326
  3. RIBAVIRIN. [Suspect]
     Active Substance: RIBAVIRIN
     Indication: HEPATITIS C
     Dosage: SECOND TREATMENT
     Route: 065
     Dates: start: 20120326
  4. INCIVEK [Suspect]
     Active Substance: TELAPREVIR
     Dosage: FIRST TREATMENT
     Route: 065
     Dates: start: 2004
  5. RIBAVIRIN. [Suspect]
     Active Substance: RIBAVIRIN
     Dosage: FIRST TREATMENT
     Route: 065
     Dates: start: 2004
  6. PEGASYS [Suspect]
     Active Substance: PEGINTERFERON ALFA-2A
     Dosage: FIRST TREATMENT
     Route: 065
     Dates: start: 2004

REACTIONS (4)
  - Fatigue [Unknown]
  - Weight increased [Unknown]
  - Dizziness [Unknown]
  - Abdominal distension [Unknown]
